FAERS Safety Report 9304449 (Version 1)
Quarter: 2013Q2

REPORT INFORMATION
  Report Type: Report from Study
  Country: ES (occurrence: ES)
  Receive Date: 20130522
  Receipt Date: 20130522
  Transmission Date: 20140414
  Serious: Yes (Other)
  Sender: FDA-Public Use
  Company Number: ES-ROCHE-1225846

PATIENT
  Age: 12 Year
  Sex: Female

DRUGS (1)
  1. RITUXIMAB [Suspect]
     Indication: IMMUNE TOLERANCE INDUCTION
     Route: 065

REACTIONS (1)
  - Renal graft loss [Unknown]
